FAERS Safety Report 8150418-9 (Version None)
Quarter: 2012Q1

REPORT INFORMATION
  Report Type: 
  Country: None (occurrence: None)
  Receive Date: 20120220
  Receipt Date: 20120214
  Transmission Date: 20120608
  Serious: Yes (Hospitalization)
  Sender: FDA-Public Use
  Company Number: JP-PFIZER INC-2011261609

PATIENT
  Age: 57 Year
  Sex: Male
  Weight: 50 kg

DRUGS (45)
  1. SUNITINIB MALATE [Suspect]
     Indication: GASTROINTESTINAL STROMAL TUMOUR
     Dosage: 50 MG, 1X/DAY
     Route: 048
     Dates: start: 20090212
  2. BETAMETHASONE [Concomitant]
     Dosage: 2 MG, 1X/DAY
     Route: 042
     Dates: start: 20100916
  3. SOLDEM 3A [Concomitant]
     Dosage: 200 ML, 1X/DAY
     Route: 042
     Dates: start: 20100826, end: 20100827
  4. SOLDEM 3A [Concomitant]
     Dosage: 200 ML, 1X/DAY
     Route: 042
     Dates: start: 20100902
  5. PLEVITA S [Concomitant]
     Dosage: 1A ONCE DAILY
     Route: 042
     Dates: start: 20100826, end: 20100827
  6. SUNITINIB MALATE [Suspect]
     Dosage: 50 MG, 1X/DAY
     Dates: start: 20100911, end: 20100913
  7. BETAMETHASONE [Concomitant]
     Dosage: 2 MG, 1X/DAY
     Route: 042
     Dates: start: 20100826, end: 20100827
  8. BETAMETHASONE [Concomitant]
     Dosage: 2 MG, 1X/DAY
     Route: 042
     Dates: start: 20100902
  9. BETAMETHASONE [Concomitant]
     Dosage: 2 MG, 1X/DAY
     Route: 042
     Dates: start: 20100904
  10. JUVELA [Concomitant]
     Dosage: 40 G, ONCE OR TWICE DAILY
     Dates: start: 20100819, end: 20101021
  11. RINDERON-VG [Concomitant]
     Dosage: 10 G, ONCE OR TWICE DAILY
     Dates: start: 20100819, end: 20101021
  12. PLEVITA S [Concomitant]
     Dosage: 1A ONCE DAILY
     Route: 042
     Dates: start: 20100715
  13. PLEVITA S [Concomitant]
     Dosage: 1A ONCE DAILY
     Route: 042
     Dates: start: 20100902
  14. SUNITINIB MALATE [Suspect]
     Dosage: 37.5 MG, 1X/DAY
     Dates: start: 20100715, end: 20100721
  15. SUNITINIB MALATE [Suspect]
     Dosage: 50 MG, ALTERNATE DAY
     Dates: start: 20100916, end: 20101012
  16. LOXONIN [Concomitant]
     Dosage: UNK
     Route: 048
  17. PLEVITA S [Concomitant]
     Dosage: 1A ONCE DAILY
     Route: 042
     Dates: start: 20100708
  18. PLEVITA S [Concomitant]
     Dosage: 1A ONCE DAILY
     Route: 042
     Dates: start: 20100722
  19. SUNITINIB MALATE [Suspect]
     Dosage: 50 MG, 1X/DAY
     Dates: start: 20100722, end: 20100728
  20. SHAKUYAKU-KANZO-TO [Concomitant]
     Dosage: UNK
     Route: 048
  21. BETAMETHASONE [Concomitant]
     Dosage: 2 MG, 1X/DAY
     Route: 042
     Dates: start: 20100715
  22. BETAMETHASONE [Concomitant]
     Dosage: 2 MG, 1X/DAY
     Route: 042
     Dates: start: 20100805
  23. BETAMETHASONE [Concomitant]
     Dosage: 2 MG, 1X/DAY
     Route: 042
     Dates: start: 20100812
  24. BETAMETHASONE [Concomitant]
     Dosage: 2 MG, 1X/DAY
     Route: 048
     Dates: start: 20100729
  25. SOLDEM 3A [Concomitant]
     Dosage: 200 ML, 1X/DAY
     Route: 042
     Dates: start: 20100812
  26. PLEVITA S [Concomitant]
     Dosage: 1A ONCE DAILY
     Route: 042
     Dates: start: 20100805
  27. PLEVITA S [Concomitant]
     Dosage: 1A ONCE DAILY
     Route: 042
     Dates: start: 20100819
  28. SUNITINIB MALATE [Suspect]
     Dosage: 50 MG, 1X/DAY
     Dates: start: 20100826, end: 20100830
  29. SUNITINIB MALATE [Suspect]
     Dosage: 50 MG, 1X/DAY
     Dates: start: 20100904, end: 20100908
  30. BETAMETHASONE [Concomitant]
     Dosage: 2 MG, 1X/DAY
     Route: 042
     Dates: start: 20100708
  31. SOLDEM 3A [Concomitant]
     Dosage: 200 ML, 1X/DAY
     Route: 042
     Dates: start: 20100916
  32. PLEVITA S [Concomitant]
     Dosage: 1A ONCE DAILY
     Route: 042
     Dates: start: 20100812
  33. PLEVITA S [Concomitant]
     Dosage: 1A ONCE DAILY
     Route: 042
     Dates: start: 20100916
  34. HALCION [Concomitant]
     Dosage: UNK
     Route: 048
  35. BETAMETHASONE [Concomitant]
     Dosage: 2 MG, 1X/DAY
     Route: 042
     Dates: start: 20100819
  36. VEEN D [Concomitant]
     Dosage: 500 ML, 1X/DAY
     Route: 042
     Dates: start: 20100708
  37. SUNITINIB MALATE [Suspect]
     Dosage: 50 MG, 1X/DAY
     Dates: start: 20100805, end: 20100809
  38. BETAMETHASONE [Concomitant]
     Dosage: 2 MG, 1X/DAY
     Route: 042
     Dates: start: 20100722
  39. VEEN D [Concomitant]
     Dosage: 500 ML, 1X/DAY
     Dates: start: 20100715
  40. VEEN D [Concomitant]
     Dosage: 500 ML, 1X/DAY
     Route: 042
     Dates: start: 20100722
  41. VEEN D [Concomitant]
     Dosage: 500 ML, 1X/DAY
     Route: 042
     Dates: start: 20100805
  42. SOLDEM 3A [Concomitant]
     Dosage: 200 ML, 1X/DAY
     Route: 042
     Dates: start: 20100819
  43. SUNITINIB MALATE [Suspect]
     Dosage: 50 MG, 1X/DAY
     Dates: start: 20100812, end: 20100816
  44. SOLDEM 3A [Concomitant]
     Dosage: 200 ML, 1X/DAY
     Route: 042
     Dates: start: 20100904
  45. PLEVITA S [Concomitant]
     Dosage: 1A ONCE DAILY
     Route: 042
     Dates: start: 20100904

REACTIONS (6)
  - BLOOD ALKALINE PHOSPHATASE INCREASED [None]
  - ASPARTATE AMINOTRANSFERASE INCREASED [None]
  - BLOOD BILIRUBIN INCREASED [None]
  - GAMMA-GLUTAMYLTRANSFERASE INCREASED [None]
  - JAUNDICE CHOLESTATIC [None]
  - ALANINE AMINOTRANSFERASE INCREASED [None]
